FAERS Safety Report 5559273-4 (Version None)
Quarter: 2007Q4

REPORT INFORMATION
  Report Type: 
  Country: None (occurrence: None)
  Receive Date: 20071214
  Receipt Date: 20070927
  Transmission Date: 20080405
  Serious: Yes (Hospitalization)
  Sender: FDA-Public Use
  Company Number: US-ABBOTT-07P-163-0418670-00

PATIENT
  Sex: Female
  Weight: 66.284 kg

DRUGS (2)
  1. HUMIRA [Suspect]
     Indication: CROHN'S DISEASE
     Route: 058
     Dates: start: 20070817, end: 20070817
  2. HUMIRA [Suspect]
     Dates: end: 20070901

REACTIONS (3)
  - CROHN'S DISEASE [None]
  - ESCHERICHIA INFECTION [None]
  - URINARY TRACT INFECTION [None]
